FAERS Safety Report 9173520 (Version 1)
Quarter: 2013Q1

REPORT INFORMATION
  Report Type: Spontaneous
  Country: US (occurrence: None)
  Receive Date: 20130318
  Receipt Date: 20130318
  Transmission Date: 20140127
  Serious: Yes (Other)
  Sender: FDA-Public Use
  Company Number: None

PATIENT
  Age: 73 Year
  Sex: Male

DRUGS (1)
  1. XTANDI 40MG [Suspect]
     Dosage: 4 CAPS QD PO
     Route: 048
     Dates: start: 20121110, end: 20130207

REACTIONS (1)
  - Drug ineffective [None]
